FAERS Safety Report 8157496-1 (Version None)
Quarter: 2012Q1

REPORT INFORMATION
  Report Type: 
  Country: None (occurrence: None)
  Receive Date: 20120222
  Receipt Date: 20120208
  Transmission Date: 20120608
  Serious: Yes (Hospitalization, Other)
  Sender: FDA-Public Use
  Company Number: CHPA2012US002980

PATIENT
  Age: 71 Year
  Sex: Female

DRUGS (6)
  1. NICOTINE [Suspect]
     Dosage: 14 MG, QD
     Route: 062
  2. NICOTINE [Suspect]
     Dosage: 7 MG, QD
     Route: 062
  3. CELEBREX [Suspect]
     Dosage: UNK, UNK
     Route: 048
  4. MUCINEX [Concomitant]
  5. NICOTINE [Suspect]
     Indication: SMOKING CESSATION THERAPY
     Dosage: 21 MG, QD
     Route: 062
  6. ACETAMINOPHEN [Suspect]
     Dosage: 1300 MG, UNK
     Route: 048

REACTIONS (7)
  - RENAL FAILURE [None]
  - INCORRECT DRUG ADMINISTRATION DURATION [None]
  - LIVER INJURY [None]
  - OVERDOSE [None]
  - DRUG INEFFECTIVE [None]
  - FALL [None]
  - TREATMENT NONCOMPLIANCE [None]
